FAERS Safety Report 8275744-4 (Version None)
Quarter: 2012Q2

REPORT INFORMATION
  Report Type: 
  Country: None (occurrence: None)
  Receive Date: 20120410
  Receipt Date: 20120410
  Transmission Date: 20120825
  Serious: No
  Sender: FDA-Public Use
  Company Number: None

PATIENT
  Age: 84 Year
  Sex: Male
  Weight: 105.2 kg

DRUGS (2)
  1. RIFAMPIN [Suspect]
     Indication: CELLULITIS
     Dosage: 300 MG BID PO
     Route: 048
     Dates: start: 20110602, end: 20110603
  2. RIFAMPIN [Suspect]
     Indication: STAPHYLOCOCCAL INFECTION
     Dosage: 300 MG BID PO
     Route: 048
     Dates: start: 20110602, end: 20110603

REACTIONS (2)
  - RENAL FAILURE ACUTE [None]
  - DEHYDRATION [None]
